FAERS Safety Report 13504195 (Version 2)
Quarter: 2017Q2

REPORT INFORMATION
  Report Type: Report from Study
  Country: US (occurrence: US)
  Receive Date: 20170502
  Receipt Date: 20170630
  Transmission Date: 20170830
  Serious: Yes (Hospitalization)
  Sender: FDA-Public Use
  Company Number: US-ASTRAZENECA-2017SE43159

PATIENT
  Age: 51 Year
  Sex: Male
  Weight: 114.8 kg

DRUGS (3)
  1. LYNPARZA [Suspect]
     Active Substance: OLAPARIB
     Indication: OFF LABEL USE
     Route: 048
     Dates: start: 20170410
  2. LYNPARZA [Suspect]
     Active Substance: OLAPARIB
     Indication: OFF LABEL USE
     Route: 048
     Dates: start: 20170417
  3. LYNPARZA [Suspect]
     Active Substance: OLAPARIB
     Indication: OFF LABEL USE
     Route: 048

REACTIONS (2)
  - Tumour lysis syndrome [Not Recovered/Not Resolved]
  - Abdominal pain [Not Recovered/Not Resolved]
